FAERS Safety Report 6286569-3 (Version None)
Quarter: 2009Q3

REPORT INFORMATION
  Report Type: 
  Country: None (occurrence: None)
  Receive Date: 20090728
  Receipt Date: 20090722
  Transmission Date: 20100115
  Serious: Yes (Other)
  Sender: FDA-Public Use
  Company Number: DE-BRISTOL-MYERS SQUIBB COMPANY-14703722

PATIENT
  Age: 44 Year
  Sex: Female
  Weight: 74 kg

DRUGS (1)
  1. ABILIFY [Suspect]
     Indication: SCHIZOAFFECTIVE DISORDER
     Dosage: PREVIOUSLY TREATED FROM AUG04-SEP04 25MG/D, LATER 7.5MG/D(JUL08) DURATION:SEVERAL MONTHS
     Route: 048
     Dates: start: 20080701

REACTIONS (2)
  - HEARING IMPAIRED [None]
  - VISUAL IMPAIRMENT [None]
